FAERS Safety Report 25639704 (Version 1)
Quarter: 2025Q3

REPORT INFORMATION
  Report Type: Spontaneous
  Country: US (occurrence: None)
  Receive Date: 20250803
  Receipt Date: 20250803
  Transmission Date: 20251020
  Serious: Yes (Hospitalization)
  Sender: FDA-CTU
  Company Number: None

PATIENT
  Age: 89 Year
  Sex: Male

DRUGS (1)
  1. VYNDAQEL [Suspect]
     Active Substance: TAFAMIDIS MEGLUMINE
     Dosage: 80MG DAILY ORAL
     Route: 048

REACTIONS (6)
  - Loss of personal independence in daily activities [None]
  - Nervous system disorder [None]
  - Arthropathy [None]
  - Back disorder [None]
  - Muscle disorder [None]
  - Impaired driving ability [None]
